FAERS Safety Report 5202286-2 (Version None)
Quarter: 2007Q1

REPORT INFORMATION
  Report Type: 
  Country: None (occurrence: None)
  Receive Date: 20070109
  Receipt Date: 20070108
  Transmission Date: 20070707
  Serious: Yes (Hospitalization)
  Sender: FDA-Public Use
  Company Number: FR-GLAXOSMITHKLINE-B0453304A

PATIENT
  Age: 19 Year
  Sex: Male

DRUGS (3)
  1. CLAMOXYL [Suspect]
     Indication: NASOPHARYNGITIS
     Route: 065
     Dates: start: 20060901, end: 20060901
  2. ADVIL [Suspect]
     Indication: NASOPHARYNGITIS
     Route: 048
     Dates: start: 20060901
  3. DOLIPRANE [Concomitant]
     Indication: NASOPHARYNGITIS
     Route: 065
     Dates: start: 20060901

REACTIONS (3)
  - STEVENS-JOHNSON SYNDROME [None]
  - TOXIC EPIDERMAL NECROLYSIS [None]
  - TOXIC SKIN ERUPTION [None]
